FAERS Safety Report 6020384-0 (Version None)
Quarter: 2008Q4

REPORT INFORMATION
  Report Type: 
  Country: None (occurrence: None)
  Receive Date: 20081226
  Receipt Date: 20081001
  Transmission Date: 20090506
  Serious: Yes (Hospitalization)
  Sender: FDA-Public Use
  Company Number: FR-MERCK-0810FRA00003

PATIENT
  Age: 42 Year
  Sex: Female

DRUGS (3)
  1. PRIMAXIN [Suspect]
     Indication: PYREXIA
     Route: 042
     Dates: start: 20080203, end: 20080217
  2. CIPROFLOXACIN [Suspect]
     Indication: PYREXIA
     Route: 042
     Dates: start: 20080203, end: 20080217
  3. VANCOMYCIN [Suspect]
     Indication: PYREXIA
     Route: 042
     Dates: start: 20080203, end: 20080217

REACTIONS (1)
  - DRUG RASH WITH EOSINOPHILIA AND SYSTEMIC SYMPTOMS [None]
